FAERS Safety Report 8078643-6 (Version None)
Quarter: 2012Q1

REPORT INFORMATION
  Report Type: 
  Country: None (occurrence: None)
  Receive Date: 20120124
  Receipt Date: 20120111
  Transmission Date: 20120608
  Serious: Yes (Hospitalization, Other)
  Sender: FDA-Public Use
  Company Number: DSJ-2011-21234

PATIENT
  Age: 80 Year
  Sex: Male

DRUGS (7)
  1. AMLODIPINE BESYLATE AND OLMESARTAN MEDOXOMIL [Suspect]
     Indication: HYPERTENSION
     Dosage: 120/15 MG (1 D) , PER ORAL ; 160/20 MG (1 D), PER ORAL; 40/5 MG (1 IN 1 D) PER ORAL
     Route: 048
     Dates: start: 20110801, end: 20110101
  2. AMLODIPINE BESYLATE AND OLMESARTAN MEDOXOMIL [Suspect]
     Indication: HYPERTENSION
     Dosage: 120/15 MG (1 D) , PER ORAL ; 160/20 MG (1 D), PER ORAL; 40/5 MG (1 IN 1 D) PER ORAL
     Route: 048
     Dates: start: 20110101, end: 20110801
  3. AMLODIPINE BESYLATE AND OLMESARTAN MEDOXOMIL [Suspect]
     Indication: HYPERTENSION
     Dosage: 120/15 MG (1 D) , PER ORAL ; 160/20 MG (1 D), PER ORAL; 40/5 MG (1 IN 1 D) PER ORAL
     Route: 048
     Dates: start: 20110101
  4. ATORVASTATIN (ATORVASTATIN) (ATORVASTATIN) [Concomitant]
  5. DILTIAZEM [Concomitant]
  6. CHEMOTHERAPY [Suspect]
     Indication: GASTROINTESTINAL CARCINOMA
     Dosage: (2 IN 1 M) ,
     Dates: start: 20110701, end: 20111201
  7. TRIMETAZIDINE (TRIMETAZIDINE) (TRIMETAZIDINE) [Concomitant]

REACTIONS (6)
  - OVERDOSE [None]
  - BLOOD PRESSURE ABNORMAL [None]
  - GASTROINTESTINAL CARCINOMA [None]
  - HEADACHE [None]
  - DIZZINESS [None]
  - DRUG ADMINISTRATION ERROR [None]
